FAERS Safety Report 16288639 (Version 1)
Quarter: 2019Q2

REPORT INFORMATION
  Report Type: Other
  Country: NL (occurrence: NL)
  Receive Date: 20190509
  Receipt Date: 20190509
  Transmission Date: 20190711
  Serious: Yes (Hospitalization)
  Sender: FDA-Public Use
  Company Number: NL-APOTEX-2019AP013541

PATIENT
  Age: 65 Year
  Sex: Male
  Weight: 79 kg

DRUGS (1)
  1. AMLODIPINE [Suspect]
     Active Substance: AMLODIPINE BESYLATE
     Indication: HYPERTENSION
     Dosage: 10 MG, QD, 1X PER DAG 1 TABLET
     Route: 065
     Dates: start: 20170128, end: 20180916

REACTIONS (1)
  - Heart rate irregular [Recovered/Resolved with Sequelae]

NARRATIVE: CASE EVENT DATE: 20170214
